FAERS Safety Report 23178787 (Version 1)
Quarter: 2023Q4

REPORT INFORMATION
  Report Type: Spontaneous
  Country: PL (occurrence: PL)
  Receive Date: 20231113
  Receipt Date: 20231113
  Transmission Date: 20240110
  Serious: Yes (Life-Threatening)
  Sender: FDA-Public Use
  Company Number: None

PATIENT
  Age: 20 Year
  Sex: Male
  Weight: 100 kg

DRUGS (1)
  1. QUETIAPINE [Suspect]
     Active Substance: QUETIAPINE
     Indication: Product used for unknown indication
     Dosage: UP TO 26 TABLETS X 25 MG , QUETIAPINE 25 MF
     Dates: start: 20211130

REACTIONS (6)
  - Agitation [Recovered/Resolved]
  - Bedridden [Recovered/Resolved]
  - Haemarthrosis [Recovered/Resolved]
  - Oedema peripheral [Recovered/Resolved]
  - Somnolence [Recovered/Resolved]
  - Confusional state [Recovered/Resolved]

NARRATIVE: CASE EVENT DATE: 20211130
